FAERS Safety Report 8177122-5 (Version None)
Quarter: 2012Q1

REPORT INFORMATION
  Report Type: 
  Country: None (occurrence: None)
  Receive Date: 20120301
  Receipt Date: 20120223
  Transmission Date: 20120608
  Serious: Yes (Hospitalization)
  Sender: FDA-Public Use
  Company Number: US-GLAXOSMITHKLINE-B0705848A

PATIENT
  Age: 52 Year
  Sex: Male
  Weight: 112.7 kg

DRUGS (5)
  1. LIPITOR [Concomitant]
  2. VIAGRA [Concomitant]
  3. AVANDIA [Suspect]
     Indication: DIABETES MELLITUS
     Dosage: 8MG PER DAY
     Route: 048
     Dates: start: 20040701, end: 20081101
  4. ALTACE [Concomitant]
  5. TOPROL-XL [Concomitant]

REACTIONS (3)
  - VENTRICULAR TACHYCARDIA [None]
  - MYOCARDIAL INFARCTION [None]
  - CARDIOVASCULAR DISORDER [None]
